FAERS Safety Report 19362712 (Version 2)
Quarter: 2021Q2

REPORT INFORMATION
  Report Type: Report from Study
  Country: CA (occurrence: CA)
  Receive Date: 20210602
  Receipt Date: 20210607
  Transmission Date: 20210717
  Serious: Yes (Death, Hospitalization)
  Sender: FDA-Public Use
  Company Number: NVSC2021CA122476

PATIENT
  Age: 70 Year
  Sex: Male
  Weight: 101 kg

DRUGS (5)
  1. MMF [Concomitant]
     Active Substance: MYCOPHENOLATE MOFETIL
     Indication: GRAFT VERSUS HOST DISEASE
     Dosage: 500 MG, BID
     Route: 065
     Dates: start: 20210514
  2. REVOLADE [Suspect]
     Active Substance: ELTROMBOPAG OLAMINE
     Dosage: 150 MG
     Route: 048
     Dates: start: 20210331, end: 20210430
  3. REVOLADE [Suspect]
     Active Substance: ELTROMBOPAG OLAMINE
     Dosage: 75 MG, QD (INCREASED AFTER ONE WEEK)
     Route: 065
  4. PREDNISONE. [Concomitant]
     Active Substance: PREDNISONE
     Indication: GRAFT VERSUS HOST DISEASE
     Dosage: 40 MG
     Route: 065
     Dates: start: 20210514
  5. REVOLADE [Suspect]
     Active Substance: ELTROMBOPAG OLAMINE
     Indication: TRANSPLANT DYSFUNCTION
     Dosage: 50 MG, QD (FOR ONE WEEK)
     Route: 065

REACTIONS (9)
  - Acute graft versus host disease [Fatal]
  - Bacterial infection [Unknown]
  - Cytomegalovirus colitis [Fatal]
  - Septic shock [Fatal]
  - Hypoxia [Fatal]
  - Hypotension [Fatal]
  - Pyrexia [Fatal]
  - Diarrhoea [Unknown]
  - Sepsis [Fatal]

NARRATIVE: CASE EVENT DATE: 20210526
